FAERS Safety Report 24814345 (Version 1)
Quarter: 2025Q1

REPORT INFORMATION
  Report Type: Spontaneous
  Country: CA (occurrence: CA)
  Receive Date: 20250107
  Receipt Date: 20250107
  Transmission Date: 20250409
  Serious: Yes (Other)
  Sender: TEVA
  Company Number: CA-TEVA-VS-3281606

PATIENT
  Age: 60 Year
  Sex: Male

DRUGS (6)
  1. GABAPENTIN [Suspect]
     Active Substance: GABAPENTIN
     Indication: Pain management
     Route: 065
  2. NORTRIPTYLINE HYDROCHLORIDE [Suspect]
     Active Substance: NORTRIPTYLINE HYDROCHLORIDE
     Indication: Pain management
     Route: 065
  3. KETAMINE [Suspect]
     Active Substance: KETAMINE
     Indication: Pain management
     Route: 065
  4. METOCLOPRAMIDE [Suspect]
     Active Substance: METOCLOPRAMIDE
     Indication: Pain management
     Route: 065
  5. MORPHINE [Suspect]
     Active Substance: MORPHINE
     Indication: Pain management
     Route: 048
  6. BACLOFEN [Suspect]
     Active Substance: BACLOFEN
     Indication: Pain management
     Route: 065

REACTIONS (4)
  - Delirium [Recovered/Resolved]
  - Off label use [Recovered/Resolved]
  - Sedation [Recovered/Resolved]
  - Drug ineffective [Recovered/Resolved]
